FAERS Safety Report 8416670-7 (Version None)
Quarter: 2012Q2

REPORT INFORMATION
  Report Type: 
  Country: None (occurrence: None)
  Receive Date: 20120606
  Receipt Date: 20120601
  Transmission Date: 20120825
  Serious: No
  Sender: FDA-Public Use
  Company Number: US-PFIZER INC-2012132644

PATIENT
  Sex: Male
  Weight: 88.435 kg

DRUGS (1)
  1. IBUPROFEN (ADVIL) [Suspect]
     Indication: PAIN
     Dosage: TWO TABLETS OF 200MG AT A TIME
     Route: 048

REACTIONS (2)
  - SOMNOLENCE [None]
  - FATIGUE [None]
